FAERS Safety Report 14956461 (Version 2)
Quarter: 2018Q2

REPORT INFORMATION
  Report Type: Spontaneous
  Country: US (occurrence: US)
  Receive Date: 20180531
  Receipt Date: 20180621
  Transmission Date: 20180711
  Serious: No
  Sender: FDA-Public Use
  Company Number: US-PFIZER INC-2018220722

PATIENT
  Age: 69 Year
  Sex: Male
  Weight: 122 kg

DRUGS (19)
  1. TAMSULOSIN HCL [Concomitant]
     Active Substance: TAMSULOSIN HYDROCHLORIDE
     Dosage: 0.4 MG, 1X/DAY
     Route: 048
  2. FEXOFENADINE HCL [Concomitant]
     Active Substance: FEXOFENADINE HYDROCHLORIDE
     Dosage: 180 MG, AS NEEDED (1 TABLET AS NEEDED ORALLY ONCE A DAY)
     Route: 048
  3. GABAPENTIN. [Concomitant]
     Active Substance: GABAPENTIN
     Dosage: 300 MG, DAILY (ONE CAPSULE BY MOUTH AT NIGHT)
     Route: 048
  4. LISINOPRIL. [Concomitant]
     Active Substance: LISINOPRIL
     Dosage: 40 MG, 1X/DAY
     Route: 048
  5. PRAVASTATIN SODIUM. [Concomitant]
     Active Substance: PRAVASTATIN SODIUM
     Dosage: 80 MG, 1X/DAY
     Route: 048
  6. CETIRIZINE HCL [Concomitant]
     Active Substance: CETIRIZINE HYDROCHLORIDE
     Dosage: 10 MG, 1X/DAY (ONCE A NIGHT)
     Route: 048
  7. TOVIAZ [Suspect]
     Active Substance: FESOTERODINE FUMARATE
     Indication: BLADDER DISORDER
     Dosage: 4 MG, 1X/DAY (1 PO Q DAY)
     Route: 048
     Dates: start: 20180504, end: 20180607
  8. TOVIAZ [Suspect]
     Active Substance: FESOTERODINE FUMARATE
     Indication: MICTURITION URGENCY
  9. ROPINIROLE HCL [Concomitant]
     Active Substance: ROPINIROLE HYDROCHLORIDE
     Dosage: 1 MG, 3X/DAY (ONE IN AM, TWO IN PM)
     Route: 048
  10. ASPIRIN. [Concomitant]
     Active Substance: ASPIRIN
     Dosage: 81 MG, DAILY
     Route: 048
  11. CARVEDILOL. [Concomitant]
     Active Substance: CARVEDILOL
     Dosage: 6.25 MG, 2X/DAY
     Route: 048
  12. AZITHROMYCIN ANHYDROUS. [Concomitant]
     Active Substance: AZITHROMYCIN ANHYDROUS
     Dosage: 250 MG, UNK (TAKE TWO TABLETS DAY ONE THEN ONE TABLET DAILY FOR 4 DAYS ORAL ONCE A DAY, 5 DAY(S))
     Route: 048
  13. FLUTICASONE PROPIONATE. [Concomitant]
     Active Substance: FLUTICASONE PROPIONATE
     Dosage: 100 UG, AS NEEDED (50 MCG/ACT 1 SPRAY IN EACH NOSTRIL NASALLY ONCE A DAY AS NEEDED)
     Route: 045
  14. TRAMADOL HCL [Concomitant]
     Active Substance: TRAMADOL HYDROCHLORIDE
     Dosage: 50 MG, AS NEEDED (1 TABLET AS NEEDED ORALLY EVERY 6 HRS)
     Route: 048
  15. TESTOSTERONE CYPIONATE. [Concomitant]
     Active Substance: TESTOSTERONE CYPIONATE
     Dosage: 1 ML, UNK (Q 2 WEEKS)
     Route: 030
  16. FISH OIL [Concomitant]
     Active Substance: FISH OIL
     Dosage: 1000 MG, 3X/DAY
     Route: 048
  17. POTASSIUM [Concomitant]
     Active Substance: POTASSIUM
     Dosage: 99 MG, 1X/DAY
     Route: 048
  18. FUROSEMIDE. [Concomitant]
     Active Substance: FUROSEMIDE
     Dosage: 40 MG, 1X/DAY
     Route: 048
  19. NAPROSYN [Concomitant]
     Active Substance: NAPROXEN
     Dosage: 500 MG, AS NEEDED (1 TABLET ORALLY TWICE A DAY PRN)
     Route: 048

REACTIONS (3)
  - Dyspnoea [Recovered/Resolved]
  - Chest discomfort [Recovered/Resolved]
  - Peripheral swelling [Recovered/Resolved]

NARRATIVE: CASE EVENT DATE: 201805
